FAERS Safety Report 15702697 (Version 1)
Quarter: 2018Q4

REPORT INFORMATION
  Report Type: Report from Study
  Country: US (occurrence: US)
  Receive Date: 20181210
  Receipt Date: 20181210
  Transmission Date: 20190205
  Serious: No
  Sender: FDA-Public Use
  Company Number: US-KYOWAKIRIN-2018BKK007169

PATIENT

DRUGS (1)
  1. GRANISETRON [Suspect]
     Active Substance: GRANISETRON
     Indication: NAUSEA
     Dosage: 1 PATCH EVERY 7 DAYS
     Route: 061
     Dates: start: 20180911, end: 20180925

REACTIONS (5)
  - Product adhesion issue [Unknown]
  - Urticaria [Unknown]
  - Pruritus [Unknown]
  - Burning sensation [Unknown]
  - Product use in unapproved indication [Recovered/Resolved]

NARRATIVE: CASE EVENT DATE: 201809
